FAERS Safety Report 8036662-X (Version None)
Quarter: 2012Q1

REPORT INFORMATION
  Report Type: 
  Country: None (occurrence: None)
  Receive Date: 20120111
  Receipt Date: 20120109
  Transmission Date: 20120608
  Serious: Yes (Death, Hospitalization)
  Sender: FDA-Public Use
  Company Number: IN-PFIZER INC-2012005464

PATIENT
  Age: 67 Year
  Sex: Male

DRUGS (1)
  1. SUTENT [Suspect]
     Indication: METASTATIC RENAL CELL CARCINOMA
     Dosage: 50 MG, 1X/DAY
     Route: 048
     Dates: start: 20111209

REACTIONS (7)
  - DISEASE PROGRESSION [None]
  - CARDIAC ARREST [None]
  - BLOOD PRESSURE DECREASED [None]
  - METASTATIC RENAL CELL CARCINOMA [None]
  - VOMITING [None]
  - DIARRHOEA [None]
  - FLUID RETENTION [None]
